FAERS Safety Report 9525452 (Version 1)
Quarter: 2013Q1

REPORT INFORMATION
  Report Type: Spontaneous
  Country: US (occurrence: None)
  Receive Date: 20130314
  Receipt Date: 20130314
  Transmission Date: 20140127
  Serious: No
  Sender: FDA-Public Use
  Company Number: 1301USA011720

PATIENT
  Age: 39 Year
  Sex: Male

DRUGS (11)
  1. VICTRELIS [Suspect]
     Dosage: 200 MG, ORAL
     Route: 048
  2. REBETOL (RIBAVIRIN) CAPSULE, 200MG [Suspect]
     Dosage: ORAL
     Route: 048
  3. PEGINTERFERON ALFA-2B [Suspect]
  4. HUMULIN (INSULIN HUMAN) [Concomitant]
  5. LISINOPRIL (LISINOPRIL) [Concomitant]
  6. CITALOPRAM (CITALOPRAM) [Concomitant]
  7. METFORMIN (METFORMIN) [Concomitant]
  8. VALTREX (VALACYCLOVIR HYDROCHLORIDE) [Concomitant]
  9. ATRIPLA (EFAVIRENZ, EMTRICITABINE, TENOFOVIR DISPROXIL FUMARATE) [Concomitant]
  10. VITAMINS (UNSPECIFIED) (VITAMINS UNSPECIFIED) [Concomitant]
  11. EPOGEN (EPOETIN ALFA) [Concomitant]

REACTIONS (1)
  - Anaemia [None]
